FAERS Safety Report 6421950-0 (Version None)
Quarter: 2009Q4

REPORT INFORMATION
  Report Type: 
  Country: None (occurrence: None)
  Receive Date: 20091030
  Receipt Date: 20091028
  Transmission Date: 20100525
  Serious: Yes (Hospitalization)
  Sender: FDA-Public Use
  Company Number: CH-BAYER-200937115GPV

PATIENT
  Age: 87 Year
  Sex: Female

DRUGS (5)
  1. ASPIRIN [Suspect]
     Indication: DRUG USE FOR UNKNOWN INDICATION
     Route: 048
     Dates: end: 20090818
  2. PRAVASTATIN [Concomitant]
     Route: 048
  3. ENALAPRIL [Concomitant]
     Route: 048
  4. FLURAZEPAM [Concomitant]
     Route: 048
  5. LORAZEPAM [Concomitant]
     Route: 048

REACTIONS (3)
  - ANAEMIA [None]
  - ASTHENIA [None]
  - GASTROINTESTINAL HAEMORRHAGE [None]
